FAERS Safety Report 4744432-0 (Version None)
Quarter: 2005Q3

REPORT INFORMATION
  Report Type: 
  Country: None (occurrence: None)
  Receive Date: 20050811
  Receipt Date: 20050811
  Transmission Date: 20060218
  Serious: No
  Sender: FDA-Public Use
  Company Number: None

PATIENT
  Age: 68 Year
  Sex: Female
  Weight: 68.0396 kg

DRUGS (7)
  1. LEVOXYL [Suspect]
     Indication: HYPOTHYROIDISM
     Dosage: ONCE A DAY IN AM
     Dates: start: 19990101, end: 20050809
  2. PAXIL [Concomitant]
  3. ZOCOR [Concomitant]
  4. ZETIA [Concomitant]
  5. TRANDATE [Concomitant]
  6. EVISTA [Concomitant]
  7. WELLBUTRIN [Concomitant]

REACTIONS (6)
  - COUGH [None]
  - DRY THROAT [None]
  - DYSPHAGIA [None]
  - DYSPHONIA [None]
  - DYSPNOEA [None]
  - WHEEZING [None]
